FAERS Safety Report 20216332 (Version 1)
Quarter: 2021Q4

REPORT INFORMATION
  Report Type: Spontaneous
  Country: US (occurrence: US)
  Receive Date: 20211222
  Receipt Date: 20211222
  Transmission Date: 20220303
  Serious: Yes (Other)
  Sender: FDA-Public Use
  Company Number: US-MYLANLABS-2021M1094563

PATIENT
  Age: 55 Year
  Sex: Male

DRUGS (1)
  1. HYDROCHLOROTHIAZIDE [Suspect]
     Active Substance: HYDROCHLOROTHIAZIDE
     Indication: Hyperkalaemia
     Dosage: 25 MILLIGRAM, QD
     Route: 065

REACTIONS (3)
  - Dizziness postural [Recovered/Resolved]
  - Pollakiuria [Recovered/Resolved]
  - Off label use [Unknown]
